FAERS Safety Report 9084524 (Version 3)
Quarter: 2018Q4

REPORT INFORMATION
  Report Type: Spontaneous
  Country: US (occurrence: US)
  Receive Date: 20130131
  Receipt Date: 20181204
  Transmission Date: 20190205
  Serious: Yes (Other)
  Sender: FDA-Public Use
  Company Number: US-PFIZER INC-2013032179

PATIENT
  Age: 74 Year
  Sex: Female
  Weight: 77.9 kg

DRUGS (5)
  1. LATANOPROST. [Suspect]
     Active Substance: LATANOPROST
     Indication: GLAUCOMA
     Dosage: UNK (0.005% / 2.5ML)
  2. LATANOPROST. [Suspect]
     Active Substance: LATANOPROST
     Dosage: UNK
  3. TRIEST [Concomitant]
     Active Substance: ESTRADIOL\ESTRIOL\ESTRONE
     Indication: HORMONE REPLACEMENT THERAPY
     Dosage: 30 MG, UNK (2 TO 4 TIMES 5 DAYS A WEEK)
  4. PROGESTERONE. [Concomitant]
     Active Substance: PROGESTERONE
     Dosage: UNK
  5. PROGESTERONE. [Concomitant]
     Active Substance: PROGESTERONE
     Indication: HORMONE REPLACEMENT THERAPY
     Dosage: 30 MG, UNK (2 PUMPS 5 DAYS A WEEK)

REACTIONS (4)
  - Drug ineffective [Unknown]
  - Eye pruritus [Unknown]
  - Eye burns [Recovered/Resolved]
  - Ocular hyperaemia [Unknown]
